FAERS Safety Report 23529650 (Version 1)
Quarter: 2024Q1

REPORT INFORMATION
  Report Type: Spontaneous
  Country: US (occurrence: US)
  Receive Date: 20240216
  Receipt Date: 20240216
  Transmission Date: 20240409
  Serious: No
  Sender: FDA-Public Use
  Company Number: US-VALIDUS PHARMACEUTICALS LLC-US-VDP-2023-016033

PATIENT

DRUGS (1)
  1. LASIX [Suspect]
     Active Substance: FUROSEMIDE
     Indication: Swelling
     Dosage: UNK, PRN
     Route: 065
     Dates: start: 20230326

REACTIONS (2)
  - Weight increased [Recovered/Resolved]
  - Peripheral swelling [Unknown]
